FAERS Safety Report 6066551-1 (Version None)
Quarter: 2009Q1

REPORT INFORMATION
  Report Type: 
  Country: None (occurrence: None)
  Receive Date: 20090205
  Receipt Date: 20090130
  Transmission Date: 20090719
  Serious: Yes (Hospitalization)
  Sender: FDA-Public Use
  Company Number: A0745835A

PATIENT
  Age: 57 Year
  Sex: Male
  Weight: 190.5 kg

DRUGS (21)
  1. AVANDIA [Suspect]
     Dosage: 8MG PER DAY
     Route: 048
     Dates: start: 20021201, end: 20070301
  2. PROZAC [Concomitant]
  3. CELEXA [Concomitant]
  4. CAPTOPRIL [Concomitant]
  5. LASIX [Concomitant]
  6. METHOCARBAMOL [Concomitant]
  7. GABAPENTIN [Concomitant]
  8. HYDROXYZINE [Concomitant]
  9. CLOTRIMAZOLE [Concomitant]
  10. LORATADINE [Concomitant]
  11. MONTELUKAST SODIUM [Concomitant]
  12. AMITRIPTYLINE HCL [Concomitant]
  13. ALBUTEROL [Concomitant]
  14. IPRATROPIUM BROMIDE [Concomitant]
  15. LEVOTHYROXINE [Concomitant]
  16. METHADONE HYDROCHLORIDE [Concomitant]
  17. NIACIN [Concomitant]
  18. SENNA [Concomitant]
  19. SINGULAIR [Concomitant]
  20. CHLORPHENTERMINE 65MG TAB [Concomitant]
  21. MELATONIN [Concomitant]

REACTIONS (3)
  - ANEURYSM [None]
  - CHEST PAIN [None]
  - OBSTRUCTION [None]
